FAERS Safety Report 9173969 (Version 2)
Quarter: 2013Q1

REPORT INFORMATION
  Report Type: Report from Study
  Country: AU (occurrence: AU)
  Receive Date: 20130320
  Receipt Date: 20130328
  Transmission Date: 20140127
  Serious: Yes (Other)
  Sender: FDA-Public Use
  Company Number: AU-JNJFOC-20130104268

PATIENT
  Age: 64 Year
  Sex: Female

DRUGS (10)
  1. STELARA [Suspect]
     Indication: PRODUCT USED FOR UNKNOWN INDICATION
     Route: 058
     Dates: start: 20130109, end: 20130109
  2. STELARA [Suspect]
     Indication: PRODUCT USED FOR UNKNOWN INDICATION
     Route: 058
     Dates: start: 20121017, end: 20121017
  3. STELARA [Suspect]
     Indication: PRODUCT USED FOR UNKNOWN INDICATION
     Route: 058
     Dates: start: 20120725, end: 20120725
  4. STELARA [Suspect]
     Indication: PRODUCT USED FOR UNKNOWN INDICATION
     Route: 058
     Dates: start: 20120627, end: 20120627
  5. PLAVIX [Concomitant]
     Route: 065
  6. COVERSYL [Concomitant]
     Route: 065
  7. NORVASC [Concomitant]
     Route: 065
  8. NOTEN [Concomitant]
     Route: 065
  9. EZETROL [Concomitant]
     Route: 065
  10. CRESTOR [Concomitant]
     Route: 065

REACTIONS (6)
  - Diverticulitis [Unknown]
  - Nausea [Recovered/Resolved]
  - Vomiting [Recovered/Resolved]
  - Diarrhoea [Recovered/Resolved]
  - Parasitic gastroenteritis [Recovered/Resolved]
  - Hepatic enzyme increased [Unknown]
